FAERS Safety Report 4476300-6 (Version None)
Quarter: 2004Q4

REPORT INFORMATION
  Report Type: 
  Country: None (occurrence: None)
  Receive Date: 20041016
  Receipt Date: 20040927
  Transmission Date: 20050328
  Serious: Yes (Death, Life-Threatening, Hospitalization, Disabling, Other)
  Sender: FDA-Public Use
  Company Number: US-MERCK-0409USA02220

PATIENT
  Age: 52 Year
  Sex: Male

DRUGS (3)
  1. ANTINEOPLASTIC (UNSPECIFIED) [Concomitant]
     Indication: OESOPHAGEAL CARCINOMA
     Route: 065
     Dates: start: 20040101, end: 20040101
  2. EMEND [Suspect]
     Indication: PROPHYLAXIS OF NAUSEA AND VOMITING
     Route: 048
     Dates: start: 20040101, end: 20040101
  3. EMEND [Suspect]
     Route: 048
     Dates: start: 20040101, end: 20040101

REACTIONS (1)
  - OESOPHAGEAL CARCINOMA [None]
